FAERS Safety Report 11785299 (Version 1)
Quarter: 2015Q4

REPORT INFORMATION
  Report Type: Spontaneous
  Country: GB (occurrence: GB)
  Receive Date: 20151130
  Receipt Date: 20151130
  Transmission Date: 20160305
  Serious: Yes (Other)
  Sender: FDA-Public Use
  Company Number: PHFR2015GB009147

PATIENT
  Age: 55 Year
  Sex: Female

DRUGS (4)
  1. EVEROLIMUS [Suspect]
     Active Substance: EVEROLIMUS
     Indication: BREAST CANCER
     Route: 065
  2. ERIBULIN [Concomitant]
     Active Substance: ERIBULIN
     Indication: PRODUCT USED FOR UNKNOWN INDICATION
     Route: 065
  3. CAPECITABINE. [Concomitant]
     Active Substance: CAPECITABINE
     Indication: PRODUCT USED FOR UNKNOWN INDICATION
     Route: 065
  4. FASLODEX [Concomitant]
     Active Substance: FULVESTRANT
     Indication: PRODUCT USED FOR UNKNOWN INDICATION
     Route: 065

REACTIONS (6)
  - Malignant neoplasm progression [Unknown]
  - Hepatic lesion [Unknown]
  - Rash [Unknown]
  - Fatigue [Unknown]
  - Cough [Unknown]
  - Dyspnoea [Unknown]

NARRATIVE: CASE EVENT DATE: 201307
